FAERS Safety Report 6647984-9 (Version None)
Quarter: 2010Q1

REPORT INFORMATION
  Report Type: 
  Country: None (occurrence: None)
  Receive Date: 20100324
  Receipt Date: 20100318
  Transmission Date: 20100710
  Serious: Yes (Life-Threatening, Hospitalization)
  Sender: FDA-Public Use
  Company Number: GB-NOVOPROD-305898

PATIENT
  Age: 16 Year
  Sex: Female
  Weight: 62.6 kg

DRUGS (1)
  1. NORDITROPIN [Suspect]
     Dosage: 2.2 MG, UNK
     Route: 058
     Dates: start: 20070401, end: 20100201

REACTIONS (1)
  - RHABDOMYOSARCOMA [None]
